FAERS Safety Report 7003855-X (Version None)
Quarter: 2010Q3

REPORT INFORMATION
  Report Type: 
  Country: None (occurrence: None)
  Receive Date: 20100917
  Receipt Date: 20100907
  Transmission Date: 20110219
  Serious: Yes (Other)
  Sender: FDA-Public Use
  Company Number: OSCN-NO-1009S-0245

PATIENT
  Age: 43 Year
  Sex: Female

DRUGS (1)
  1. OMNISCAN [Suspect]
     Indication: PRODUCT USED FOR UNKNOWN INDICATION
     Dosage: NR, SINGLE DOSE
     Dates: start: 20050902, end: 20050902

REACTIONS (1)
  - NEPHROGENIC SYSTEMIC FIBROSIS [None]
